FAERS Safety Report 13765555 (Version 4)
Quarter: 2018Q1

REPORT INFORMATION
  Report Type: Report from Study
  Country: CA (occurrence: CA)
  Receive Date: 20170718
  Receipt Date: 20180312
  Transmission Date: 20180508
  Serious: Yes (Hospitalization)
  Sender: FDA-Public Use
  Company Number: US-ASTRAZENECA-2017SE73418

PATIENT
  Age: 23714 Day
  Sex: Male
  Weight: 74.8 kg

DRUGS (9)
  1. MORPHINE [Concomitant]
     Active Substance: MORPHINE
     Indication: ABDOMINAL PAIN
     Dosage: 2-2.5 MG
     Route: 065
     Dates: start: 20170703
  2. TRANEXAMIC ACID. [Concomitant]
     Active Substance: TRANEXAMIC ACID
     Indication: PROPHYLAXIS
     Dosage: 500 MG
     Route: 065
     Dates: start: 20170602
  3. METHYLPREDNISOLONE. [Concomitant]
     Active Substance: METHYLPREDNISOLONE
     Indication: PROPHYLAXIS
     Dosage: 2 MG/KG
     Route: 065
     Dates: start: 20170704, end: 20170708
  4. MEDI4736 (DURVALUMAB) [Suspect]
     Active Substance: DURVALUMAB
     Indication: ACUTE MYELOID LEUKAEMIA
     Route: 041
     Dates: start: 20170620, end: 20170620
  5. NYSTATIN. [Concomitant]
     Active Substance: NYSTATIN
     Indication: ORAL DISORDER
     Dosage: 100000 ML
     Route: 065
     Dates: start: 20170602, end: 20170610
  6. DULCOLAX NOS [Concomitant]
     Active Substance: BISACODYL OR DOCUSATE SODIUM
     Indication: CONSTIPATION PROPHYLAXIS
     Dosage: 25 MG
     Route: 065
     Dates: start: 20170627
  7. AZACITIDINE. [Suspect]
     Active Substance: AZACITIDINE
     Indication: ACUTE MYELOID LEUKAEMIA
     Route: 058
     Dates: start: 20170720, end: 20170726
  8. TELMISARTAN. [Concomitant]
     Active Substance: TELMISARTAN
     Indication: PROPHYLAXIS
     Dosage: 80/12.5 MG
     Route: 065
  9. VALACICLOVIR HYDROCHLORIDE [Concomitant]
     Active Substance: VALACYCLOVIR HYDROCHLORIDE
     Indication: PROPHYLAXIS
     Dosage: 500 MG
     Route: 065
     Dates: start: 20170602

REACTIONS (3)
  - Enteritis [Recovered/Resolved]
  - Small intestinal obstruction [Recovered/Resolved]
  - Febrile neutropenia [Recovered/Resolved]

NARRATIVE: CASE EVENT DATE: 20170703
